FAERS Safety Report 9435493 (Version 1)
Quarter: 2013Q3

REPORT INFORMATION
  Report Type: Spontaneous
  Country: IE (occurrence: IE)
  Receive Date: 20130801
  Receipt Date: 20130801
  Transmission Date: 20140515
  Serious: Yes (Other)
  Sender: FDA-Public Use
  Company Number: IE-JNJFOC-20130715716

PATIENT
  Sex: Female

DRUGS (1)
  1. NICORETTE INHALER [Suspect]
     Indication: SMOKING CESSATION THERAPY
     Dosage: ^3-4 CARTRIDGES^
     Route: 065
     Dates: start: 201001

REACTIONS (2)
  - Intentional drug misuse [Unknown]
  - Nicotine dependence [Unknown]
